FAERS Safety Report 5633409-9 (Version None)
Quarter: 2008Q1

REPORT INFORMATION
  Report Type: 
  Country: None (occurrence: None)
  Receive Date: 20080221
  Receipt Date: 20080211
  Transmission Date: 20080703
  Serious: Yes (Other)
  Sender: FDA-Public Use
  Company Number: US-PFIZER INC-2008012995

PATIENT
  Sex: Female
  Weight: 61.7 kg

DRUGS (10)
  1. LIPITOR [Suspect]
     Indication: LOW DENSITY LIPOPROTEIN INCREASED
     Dates: start: 20080111, end: 20080207
  2. METOPROLOL TARTRATE [Concomitant]
  3. LANOXIN [Concomitant]
  4. GLIPIZIDE [Concomitant]
  5. PROPOXYPHENE HCL AND ACETAMINOPHEN [Concomitant]
  6. FUROSEMIDE [Concomitant]
  7. DRUG USED IN DIABETES [Concomitant]
  8. AMOXICILLIN [Concomitant]
     Dosage: TEXT:4 CAPSULES WHEN NEEDED
  9. METOPROLOL TARTRATE [Concomitant]
     Dosage: TEXT:METOPROLOL EYE DROPS
  10. TOPROL [Concomitant]

REACTIONS (3)
  - GAIT DISTURBANCE [None]
  - MYALGIA [None]
  - PAIN [None]
